FAERS Safety Report 7591732-5 (Version None)
Quarter: 2011Q2

REPORT INFORMATION
  Report Type: 
  Country: None (occurrence: None)
  Receive Date: 20110627
  Receipt Date: 20110621
  Transmission Date: 20111010
  Serious: Yes (Hospitalization)
  Sender: FDA-Public Use
  Company Number: GER/UKI/10/0015206

PATIENT
  Age: 26 Year
  Sex: Female

DRUGS (5)
  1. PROPOFOL [Concomitant]
  2. FENTANYL [Concomitant]
  3. ONDANSETRON [Suspect]
     Indication: PROPHYLAXIS OF NAUSEA AND VOMITING
     Dosage: 4 MG
  4. SEVOFLURANE [Concomitant]
  5. DEXAMETHASONE [Concomitant]

REACTIONS (6)
  - MIGRAINE [None]
  - ANIMAL SCRATCH [None]
  - WOUND INFECTION [None]
  - NAUSEA [None]
  - PHOTOPHOBIA [None]
  - DEBRIDEMENT [None]
